FAERS Safety Report 9198547 (Version 1)
Quarter: 2013Q1

REPORT INFORMATION
  Report Type: Spontaneous
  Country: DE (occurrence: DE)
  Receive Date: 20130329
  Receipt Date: 20130329
  Transmission Date: 20140127
  Serious: Yes (Hospitalization)
  Sender: FDA-Public Use
  Company Number: DE-ELI_LILLY_AND_COMPANY-DE201204003131

PATIENT
  Age: 58 Year
  Sex: Female

DRUGS (4)
  1. FORSTEO [Suspect]
     Indication: OSTEOPOROSIS
     Dosage: UNK, QD
     Route: 058
     Dates: start: 20120316
  2. CORTISON [Concomitant]
  3. VITAMIN D NOS [Concomitant]
     Dosage: 20000 IU, EVERY 14 DAYS
  4. TILIDIN [Concomitant]
     Dosage: 150 MG, BID

REACTIONS (3)
  - Dyspnoea [Not Recovered/Not Resolved]
  - Chronic obstructive pulmonary disease [Not Recovered/Not Resolved]
  - Asthenia [Not Recovered/Not Resolved]
